FAERS Safety Report 9426061 (Version 2)
Quarter: 2013Q3

REPORT INFORMATION
  Report Type: Spontaneous
  Country: BE (occurrence: BE)
  Receive Date: 20130730
  Receipt Date: 20130831
  Transmission Date: 20140515
  Serious: Yes (Other)
  Sender: FDA-Public Use
  Company Number: BE-AMGEN-BELSP2013052183

PATIENT
  Age: 40 Year
  Sex: Female

DRUGS (31)
  1. XGEVA [Suspect]
     Indication: METASTASES TO BONE
     Dosage: 120 MG, Q4WK
     Route: 065
  2. XGEVA [Suspect]
     Indication: BREAST CANCER
  3. ARANESP [Concomitant]
     Dosage: 500 MUG/ML, UNK
     Dates: start: 20130124
  4. TAXOL [Concomitant]
     Dosage: UNK
  5. MEDROL                             /00049601/ [Concomitant]
     Dosage: 32 MG, UNK
     Dates: start: 20130103
  6. TAXOTERE [Concomitant]
     Dosage: 160 MG/8 ML, UNK
     Dates: start: 20130103
  7. SODIUM CHLORIDE [Concomitant]
     Dosage: 500 ML, UNK
     Dates: start: 20130103
  8. NEULASTA [Concomitant]
     Dosage: 6 MG, UNK
     Dates: start: 20130104
  9. HEPARINE                           /00027701/ [Concomitant]
     Dosage: 100 E/ML, UNK
     Dates: start: 20130124
  10. XENETIX [Concomitant]
     Dosage: 100 ML, UNK
     Dates: start: 20130617
  11. FASLODEX                           /01285001/ [Concomitant]
     Dosage: 250 MG/5 ML, UNK
     Dates: start: 20130627
  12. LITICAN                            /00690801/ [Concomitant]
     Dosage: 50 MG/2 ML, UNK
     Dates: start: 20130702
  13. MOTILIUM                           /00498201/ [Concomitant]
     Dosage: 10 MG, UNK
     Dates: start: 20130702
  14. OXYCONTIN [Concomitant]
     Dosage: 5 MG, UNK
     Dates: start: 20130702
  15. PARACETAMOL [Concomitant]
     Dosage: 100 ML, 1000, UNK
     Dates: start: 20130704
  16. PLASMALYTE A [Concomitant]
     Dosage: 1000 ML, UNK
     Dates: start: 20130702
  17. BLANCOPROCT [Concomitant]
     Dosage: UNK
     Dates: start: 20130703
  18. AGYRAX                             /00759701/ [Concomitant]
     Dosage: UNK
     Dates: start: 20130720
  19. HALDOL                             /00027401/ [Concomitant]
     Dosage: 5 MG/1 ML, UNK
     Dates: start: 20130728
  20. HIBIDIL [Concomitant]
     Dosage: 15 ML, UNK
     Dates: start: 20130729
  21. INSTILLAGEL [Concomitant]
     Dosage: 11 ML, UNK
     Dates: start: 20130729
  22. LINISOL [Concomitant]
     Dosage: 10 ML 2%
     Dates: start: 20130729
  23. PANTOMED                           /00178901/ [Concomitant]
     Dosage: 40 MG, UNK
     Dates: start: 20130721
  24. PRIMPERAN [Concomitant]
     Dosage: 20 MG, UNK
     Dates: start: 20130720
  25. PROLIPID [Concomitant]
     Dosage: 50 ML/2%, UNK
     Dates: start: 20130728
  26. ROBINUL [Concomitant]
     Dosage: 0.2 MG/ML, UNK
     Dates: start: 20130729
  27. TOURISTIL [Concomitant]
     Dosage: UNK
     Dates: start: 20130721
  28. TRANSTEC [Concomitant]
     Dosage: 35 MUG/U, UNK
     Route: 062
     Dates: start: 20130721
  29. TRIBVIT [Concomitant]
     Dosage: UNK
     Dates: start: 20130722
  30. ZOLPIDEM EG [Concomitant]
     Dosage: 10 MG, UNK
     Dates: start: 20130721
  31. GLUCOSE [Concomitant]
     Dosage: 500 ML/5%, UNK
     Dates: start: 20130729

REACTIONS (3)
  - Blindness [Unknown]
  - Papilloedema [Unknown]
  - Maculopathy [Unknown]
